FAERS Safety Report 21031108 (Version 2)
Quarter: 2024Q2

REPORT INFORMATION
  Report Type: Spontaneous
  Country: US (occurrence: None)
  Receive Date: 20220701
  Receipt Date: 20240524
  Transmission Date: 20240715
  Serious: No
  Sender: FDA-Public Use
  Company Number: US-ROCHE-3041480

PATIENT
  Age: 54 Year
  Sex: Female

DRUGS (4)
  1. ACTEMRA [Suspect]
     Active Substance: TOCILIZUMAB
     Indication: Iridocyclitis
     Dosage: STRENGTH: 162MG/0.9ML
     Route: 058
     Dates: start: 20220127
  2. ACTEMRA [Suspect]
     Active Substance: TOCILIZUMAB
  3. ACTEMRA [Suspect]
     Active Substance: TOCILIZUMAB
     Indication: Iridocyclitis
     Dosage: STRENGTH: 162MG/0.9ML
     Route: 058
     Dates: start: 20220201
  4. ACTEMRA [Suspect]
     Active Substance: TOCILIZUMAB

REACTIONS (9)
  - Rash [Unknown]
  - Acne [Unknown]
  - Off label use [Unknown]
  - Injection site oedema [Unknown]
  - Injection site pain [Unknown]
  - Illness [Unknown]
  - Diarrhoea [Unknown]
  - Vomiting [Unknown]
  - Cyst [Unknown]

NARRATIVE: CASE EVENT DATE: 20220323
